FAERS Safety Report 4617725-5 (Version None)
Quarter: 2005Q1

REPORT INFORMATION
  Report Type: 
  Country: None (occurrence: None)
  Receive Date: 20050322
  Receipt Date: 20050221
  Transmission Date: 20050727
  Serious: Yes (Hospitalization, Disabling)
  Sender: FDA-Public Use
  Company Number: 10365

PATIENT
  Age: 52 Year
  Sex: Male

DRUGS (5)
  1. METHOTREXATE [Suspect]
     Dosage: PO
     Route: 048
     Dates: start: 20020415, end: 20040105
  2. ETANERCEPT [Suspect]
     Dosage: 25 MG 2/WK SC
     Route: 058
     Dates: start: 20030515, end: 20030915
  3. ADALIMUMAB [Suspect]
     Dates: start: 20031009, end: 20040105
  4. SULFASALAZINE [Concomitant]
  5. PREDNISOLONE [Concomitant]

REACTIONS (2)
  - ARTHRITIS BACTERIAL [None]
  - FINGER AMPUTATION [None]
